FAERS Safety Report 7243380-4 (Version None)
Quarter: 2011Q1

REPORT INFORMATION
  Report Type: 
  Country: None (occurrence: None)
  Receive Date: 20110125
  Receipt Date: 20110113
  Transmission Date: 20110831
  Serious: Yes (Hospitalization)
  Sender: FDA-Public Use
  Company Number: DE-ELI_LILLY_AND_COMPANY-DE201011002127

PATIENT
  Sex: Male
  Weight: 19.1 kg

DRUGS (2)
  1. ANTIBIOTICS [Concomitant]
     Dates: start: 20100929, end: 20101013
  2. SOMATROPIN [Suspect]
     Indication: SMALL FOR DATES BABY
     Dosage: UNK, DAILY (1/D)
     Dates: start: 20041123, end: 20101108

REACTIONS (1)
  - B-CELL LYMPHOMA [None]
